FAERS Safety Report 4571400-4 (Version None)
Quarter: 2005Q1

REPORT INFORMATION
  Report Type: 
  Country: None (occurrence: None)
  Receive Date: 20050205
  Receipt Date: 20041103
  Transmission Date: 20050727
  Serious: Yes (Hospitalization, Other)
  Sender: FDA-Public Use
  Company Number: US-ABBOTT-04P-163-0279639-00

PATIENT
  Sex: Female
  Weight: 104.5 kg

DRUGS (3)
  1. HUMIRA [Suspect]
     Indication: RHEUMATOID ARTHRITIS
     Route: 058
     Dates: start: 20031101, end: 20041009
  2. HUMIRA [Suspect]
     Route: 058
     Dates: start: 20030901, end: 20031101
  3. PAROXETINE HYDROCHLORIDE [Concomitant]
     Indication: ANXIETY
     Route: 048
     Dates: start: 20010101

REACTIONS (2)
  - CONVULSION [None]
  - PERICARDIAL EFFUSION [None]
